FAERS Safety Report 5381796-1 (Version None)
Quarter: 2007Q3

REPORT INFORMATION
  Report Type: 
  Country: None (occurrence: None)
  Receive Date: 20070705
  Receipt Date: 20070705
  Transmission Date: 20080115
  Serious: Yes (Hospitalization)
  Sender: FDA-Public Use
  Company Number: None

PATIENT
  Age: 51 Year
  Sex: Female
  Weight: 111 kg

DRUGS (1)
  1. METHOTREXATE [Suspect]
     Indication: PSORIASIS
     Dosage: 5 MG, 7.5, 10 MG ONE WK APART WEEKLY PO
     Route: 048
     Dates: start: 20070523, end: 20070606

REACTIONS (6)
  - BACTERIAL INFECTION [None]
  - DRUG INTOLERANCE [None]
  - NEUTROPHIL COUNT INCREASED [None]
  - PANCYTOPENIA [None]
  - RASH [None]
  - SKIN ULCER [None]
